FAERS Safety Report 6916264-6 (Version None)
Quarter: 2010Q3

REPORT INFORMATION
  Report Type: 
  Country: None (occurrence: None)
  Receive Date: 20100810
  Receipt Date: 20100729
  Transmission Date: 20110219
  Serious: Yes (Other)
  Sender: FDA-Public Use
  Company Number: FR-PFIZER INC-2010076200

PATIENT
  Age: 12 Year
  Sex: Female
  Weight: 38 kg

DRUGS (6)
  1. GENOTONORM [Suspect]
     Indication: GROWTH HORMONE DEFICIENCY
     Dosage: 1.9 MG, CYCLIC
     Dates: start: 20100510
  2. GENOTONORM [Suspect]
     Dosage: UNK
     Dates: start: 20100615
  3. SERETIDE [Concomitant]
     Indication: ASTHMA
     Dosage: UNK
  4. SINGULAIR [Concomitant]
     Indication: ASTHMA
     Dosage: 5 MG, 1X/DAY
     Route: 048
     Dates: start: 20100201
  5. CEFPODOXIME [Concomitant]
     Dosage: 200 MG IN 2 INTAKES
     Route: 048
     Dates: start: 20100518
  6. CETIRIZINE [Concomitant]
     Dosage: 10 MG, 1X/DAY
     Route: 048

REACTIONS (3)
  - ALOPECIA [None]
  - ANAEMIA [None]
  - HAEMATOCRIT DECREASED [None]
